FAERS Safety Report 16403419 (Version 1)
Quarter: 2019Q2

REPORT INFORMATION
  Report Type: Spontaneous
  Country: US (occurrence: US)
  Receive Date: 20190501
  Receipt Date: 20190501
  Transmission Date: 20190711
  Serious: No
  Sender: FDA-Public Use
  Company Number: None

PATIENT
  Age: 47 Year
  Sex: Female

DRUGS (1)
  1. EPCLUSA [Suspect]
     Active Substance: SOFOSBUVIR\VELPATASVIR
     Indication: HEPATITIS C
     Route: 048
     Dates: start: 20190404

REACTIONS (5)
  - Headache [None]
  - Abdominal pain [None]
  - Diarrhoea [None]
  - Tremor [None]
  - Fatigue [None]

NARRATIVE: CASE EVENT DATE: 20190501
